FAERS Safety Report 6981263-5 (Version None)
Quarter: 2010Q3

REPORT INFORMATION
  Report Type: 
  Country: None (occurrence: None)
  Receive Date: 20100914
  Receipt Date: 20100910
  Transmission Date: 20110219
  Serious: Yes (Hospitalization)
  Sender: FDA-Public Use
  Company Number: DE-AMGEN-KDC437203

PATIENT
  Sex: Female

DRUGS (6)
  1. NEULASTA [Suspect]
     Indication: PRODUCT USED FOR UNKNOWN INDICATION
     Dates: start: 20100826, end: 20100826
  2. TRASTUZUMAB [Suspect]
     Route: 042
     Dates: start: 20100623
  3. EPIRUBICIN [Suspect]
     Route: 042
     Dates: start: 20100623
  4. CYCLOPHOSPHAMIDE [Suspect]
     Route: 042
     Dates: start: 20100623
  5. PANTOPRAZOLE SODIUM [Concomitant]
  6. KARVEA [Concomitant]

REACTIONS (3)
  - FEAR [None]
  - NAUSEA [None]
  - PAIN [None]
